FAERS Safety Report 16161083 (Version 3)
Quarter: 2019Q2

REPORT INFORMATION
  Report Type: Spontaneous
  Country: GB (occurrence: GB)
  Receive Date: 20190405
  Receipt Date: 20190426
  Transmission Date: 20190711
  Serious: Yes (Other)
  Sender: FDA-Public Use
  Company Number: GB-TEVA-2019-GB-1033367

PATIENT
  Age: 82 Year

DRUGS (14)
  1. AZOPT [Concomitant]
     Active Substance: BRINZOLAMIDE
     Dosage: 2 GTT DAILY; BE
     Route: 047
  2. LATANOPROST. [Concomitant]
     Active Substance: LATANOPROST
     Dosage: 1 GTT DAILY; AT NIGHT
     Route: 047
  3. BISOPROLOL [Concomitant]
     Active Substance: BISOPROLOL
     Dosage: 3.75 MILLIGRAM DAILY;
  4. GLYCERYL TRINITRATE [Concomitant]
     Active Substance: NITROGLYCERIN
  5. WARFARIN [Suspect]
     Active Substance: WARFARIN
     Dosage: EXCEPT TUESDAY
  6. ISOSORBIDE MONONITRATE. [Concomitant]
     Active Substance: ISOSORBIDE MONONITRATE
     Dosage: 60 MILLIGRAM DAILY;
  7. LOSARTAN. [Concomitant]
     Active Substance: LOSARTAN
     Dosage: 25 MILLIGRAM DAILY;
  8. EPADERM [Concomitant]
     Active Substance: MINERAL OIL\PETROLATUM\WAX, EMULSIFYING
  9. ACETYLSALICYLIC ACID [Suspect]
     Active Substance: ASPIRIN
     Dosage: 75 MILLIGRAM DAILY;
  10. OMEPRAZOLE. [Concomitant]
     Active Substance: OMEPRAZOLE
     Dosage: 20-40MG ONE A DAY
  11. FUROSEMIDE. [Concomitant]
     Active Substance: FUROSEMIDE
     Dosage: 40 MILLIGRAM DAILY;
  12. SIMVASTATIN. [Concomitant]
     Active Substance: SIMVASTATIN
     Dosage: 40 MILLIGRAM DAILY;
  13. DIGOXIN. [Concomitant]
     Active Substance: DIGOXIN
     Dosage: 125 MICROGRAM DAILY;
  14. ALLOPURINOL. [Concomitant]
     Active Substance: ALLOPURINOL
     Dosage: 300 MILLIGRAM DAILY;

REACTIONS (2)
  - Subdural haematoma [Not Recovered/Not Resolved]
  - Circulatory collapse [Recovered/Resolved]
